FAERS Safety Report 8947518 (Version 1)
Quarter: 2012Q4

REPORT INFORMATION
  Report Type: 
  Country: US (occurrence: US)
  Receive Date: 20121204
  Receipt Date: 20121204
  Transmission Date: 20130627
  Serious: No
  Sender: FDA-Public Use
  Company Number: US-TEVA-373954USA

PATIENT
  Sex: Male

DRUGS (1)
  1. PLAN B ONE-STEP [Suspect]
     Dosage: 1.5 Milligram Daily;
     Route: 048

REACTIONS (2)
  - Rectal haemorrhage [Unknown]
  - Medication error [Unknown]
